FAERS Safety Report 8481695-2 (Version None)
Quarter: 2012Q3

REPORT INFORMATION
  Report Type: 
  Country: None (occurrence: None)
  Receive Date: 20120702
  Receipt Date: 20120618
  Transmission Date: 20120928
  Serious: No
  Sender: FDA-Public Use
  Company Number: US-ASTRAZENECA-2012SE06294

PATIENT
  Age: 61 Year
  Sex: Female

DRUGS (12)
  1. LIPITOR [Concomitant]
  2. NASONEX [Concomitant]
  3. NEXIUM [Suspect]
     Route: 048
     Dates: start: 20100721
  4. PROVENTIL [Concomitant]
  5. TESSALON [Concomitant]
  6. ASPIRIN [Concomitant]
  7. ATENOLOL [Suspect]
     Route: 048
     Dates: start: 20120105
  8. ADVAIR DISKUS 100/50 [Concomitant]
  9. EXFORGE [Concomitant]
  10. VENTOLIN [Concomitant]
  11. GLUCOPHAGE [Concomitant]
  12. SINGULAIR [Concomitant]

REACTIONS (4)
  - CONJUNCTIVITIS [None]
  - COUGH [None]
  - EPISTAXIS [None]
  - NORMOCHROMIC NORMOCYTIC ANAEMIA [None]
